FAERS Safety Report 10905194 (Version 2)
Quarter: 2015Q2

REPORT INFORMATION
  Report Type: Spontaneous
  Country: JP (occurrence: JP)
  Receive Date: 20150311
  Receipt Date: 20150407
  Transmission Date: 20150821
  Serious: Yes (Life-Threatening)
  Sender: FDA-Public Use
  Company Number: JP-009507513-1503JPN004756

PATIENT
  Age: 43 Year
  Sex: Male

DRUGS (8)
  1. SINGULAIR [Suspect]
     Active Substance: MONTELUKAST SODIUM
     Indication: RHINITIS ALLERGIC
  2. BUFFERIN [Concomitant]
     Active Substance: ASPIRIN
     Indication: LANGERHANS^ CELL HISTIOCYTOSIS
     Dosage: 81 MG, QD
     Route: 048
     Dates: start: 20100916
  3. EDIROL [Concomitant]
     Active Substance: ELDECALCITOL
     Indication: OSTEOPOROSIS
     Dosage: CAP; 0.75 MG, QD
     Route: 048
     Dates: start: 20130321
  4. GASTER [Concomitant]
     Active Substance: FAMOTIDINE
     Indication: GASTRITIS
     Dosage: 10 MG, QD; TAB
     Route: 048
     Dates: start: 20100916
  5. PREDONINE [Concomitant]
     Active Substance: PREDNISOLONE\PREDNISOLONE ACETATE\PREDNISOLONE SODIUM SUCCINATE
     Indication: LANGERHANS^ CELL HISTIOCYTOSIS
     Dosage: 5 MG, QD
     Route: 048
     Dates: start: 20100916
  6. SINGULAIR [Suspect]
     Active Substance: MONTELUKAST SODIUM
     Indication: ASTHMA
     Dosage: 5 MG, QD
     Route: 048
     Dates: start: 20140710, end: 20150226
  7. BARACLUDE [Concomitant]
     Active Substance: ENTECAVIR
     Indication: VIRAL HEPATITIS CARRIER
     Dosage: 0.5 MG, QD; TAB
     Route: 048
     Dates: start: 20100916
  8. SYMBICORT [Concomitant]
     Active Substance: BUDESONIDE\FORMOTEROL FUMARATE DIHYDRATE
     Indication: ASTHMA
     Dosage: INH; DAILY DOSAGE UNKNOWN
     Route: 055
     Dates: start: 20141120

REACTIONS (2)
  - Nephrotic syndrome [Recovered/Resolved]
  - Protein urine present [Recovering/Resolving]

NARRATIVE: CASE EVENT DATE: 20141016
